FAERS Safety Report 9518989 (Version 1)
Quarter: 2013Q3

REPORT INFORMATION
  Report Type: Spontaneous
  Country: GB (occurrence: None)
  Receive Date: 20130910
  Receipt Date: 20130910
  Transmission Date: 20140515
  Serious: Yes (Death)
  Sender: FDA-Public Use
  Company Number: MC201300420

PATIENT
  Age: 76 Year
  Sex: Male
  Weight: 82 kg

DRUGS (3)
  1. ANGIOMAX, ANGIOX (BIVALIRUDIN) INJECTION [Suspect]
     Indication: PERCUTANEOUS CORONARY INTERVENTION
     Dosage: 0.75 MG/KG, BOLUS
     Route: 042
     Dates: start: 20130218, end: 20130218
  2. ASPIRIN (ASPIRIN) [Concomitant]
  3. TICAGRELOR (TICAGRELOR) [Concomitant]

REACTIONS (3)
  - Pulmonary fibrosis [None]
  - Blood creatine phosphokinase increased [None]
  - Haemoglobin decreased [None]
